FAERS Safety Report 13862634 (Version 1)
Quarter: 2017Q3

REPORT INFORMATION
  Report Type: Report from Study
  Country: EG (occurrence: EG)
  Receive Date: 20170814
  Receipt Date: 20170814
  Transmission Date: 20171127
  Serious: Yes (Other)
  Sender: FDA-Public Use
  Company Number: EG-ROCHE-1882095

PATIENT

DRUGS (4)
  1. MYCOPHENOLATE MOFETIL. [Suspect]
     Active Substance: MYCOPHENOLATE MOFETIL
     Indication: IMMUNOSUPPRESSION
     Route: 065
  2. DACLIZUMAB [Suspect]
     Active Substance: DACLIZUMAB
     Indication: IMMUNOSUPPRESSION
     Route: 042
  3. CYCLOSPORINE MICROEMULSION [Suspect]
     Active Substance: CYCLOSPORINE
     Indication: IMMUNOSUPPRESSION
     Route: 065
  4. PREDNISOLONE. [Suspect]
     Active Substance: PREDNISOLONE
     Indication: IMMUNOSUPPRESSION
     Route: 065

REACTIONS (1)
  - Osteonecrosis [Unknown]
